FAERS Safety Report 18203758 (Version 1)
Quarter: 2020Q3

REPORT INFORMATION
  Report Type: Spontaneous
  Country: FR (occurrence: FR)
  Receive Date: 20200827
  Receipt Date: 20200827
  Transmission Date: 20201103
  Serious: Yes (Other)
  Sender: FDA-Public Use
  Company Number: FR-MYLANLABS-2020M1073306

PATIENT
  Age: 18 Year
  Sex: Female
  Weight: 45 kg

DRUGS (2)
  1. CIPROFLOXACINE                     /00697201/ [Suspect]
     Active Substance: CIPROFLOXACIN
     Indication: OTITIS MEDIA CHRONIC
     Dosage: 2 DOSAGE FORM, QD
     Route: 048
     Dates: start: 20200611, end: 20200611
  2. PREDNISONE MYLAN PHARMA [Suspect]
     Active Substance: PREDNISONE
     Indication: OTITIS MEDIA CHRONIC
     Dosage: 20 MILLIGRAM, QD
     Route: 048
     Dates: start: 20200611, end: 20200611

REACTIONS (5)
  - Nausea [Recovering/Resolving]
  - Dyspnoea [Recovering/Resolving]
  - Confusional state [Recovering/Resolving]
  - Abdominal distension [Recovering/Resolving]
  - Anxiety [Recovering/Resolving]

NARRATIVE: CASE EVENT DATE: 20200611
